FAERS Safety Report 7683494-8 (Version None)
Quarter: 2011Q3

REPORT INFORMATION
  Report Type: 
  Country: None (occurrence: None)
  Receive Date: 20110815
  Receipt Date: 20110811
  Transmission Date: 20111222
  Serious: Yes (Other)
  Sender: FDA-Public Use
  Company Number: FR-ABBOTT-11P-056-0845612-00

PATIENT
  Age: 40 Year
  Sex: Female

DRUGS (2)
  1. DEPAKOTE [Suspect]
     Indication: DELIRIUM
     Route: 048
     Dates: start: 20110623, end: 20110705
  2. ZYPREXA [Suspect]
     Indication: PRODUCT USED FOR UNKNOWN INDICATION
     Route: 048
     Dates: start: 20110704

REACTIONS (1)
  - NEUTROPENIA [None]
